FAERS Safety Report 17765740 (Version 2)
Quarter: 2020Q4

REPORT INFORMATION
  Report Type: Spontaneous
  Country: PK (occurrence: PK)
  Receive Date: 20200511
  Receipt Date: 20201008
  Transmission Date: 20210113
  Serious: No
  Sender: FDA-Public Use
  Company Number: PK-LUPIN PHARMACEUTICALS INC.-2020-00250

PATIENT
  Age: 29 Year
  Sex: Female
  Weight: 53 kg

DRUGS (2)
  1. TRAMADOL. [Suspect]
     Active Substance: TRAMADOL
     Indication: POSTOPERATIVE ANALGESIA
     Dosage: UNK, (INTERMITTANT DOSE)
     Route: 065
  2. PARACETAMOL [Suspect]
     Active Substance: ACETAMINOPHEN
     Indication: POSTOPERATIVE ANALGESIA
     Dosage: UNK, (INTERMITTANT DOSE)
     Route: 065

REACTIONS (1)
  - Exposure during pregnancy [Unknown]
